FAERS Safety Report 14260680 (Version 2)
Quarter: 2018Q2

REPORT INFORMATION
  Report Type: Spontaneous
  Country: PT (occurrence: PT)
  Receive Date: 20171207
  Receipt Date: 20180621
  Transmission Date: 20180711
  Serious: Yes (Hospitalization, Other)
  Sender: FDA-Public Use
  Company Number: PT-MYLANLABS-2017M1077168

PATIENT
  Age: 33 Year
  Sex: Female

DRUGS (4)
  1. LOSARTAN. [Concomitant]
     Active Substance: LOSARTAN
     Indication: HYPERTENSION
     Dosage: 50 MG, QD
  2. CICLOSPORIN [Suspect]
     Active Substance: CYCLOSPORINE
     Indication: BEHCET^S SYNDROME
     Dosage: 300 MG, QD
     Route: 065
  3. PREDNISOLONE. [Suspect]
     Active Substance: PREDNISOLONE
     Indication: BEHCET^S SYNDROME
     Dosage: 10 MG, QD
     Route: 065
  4. ADALIMUMAB [Suspect]
     Active Substance: ADALIMUMAB
     Indication: BEHCET^S SYNDROME
     Dosage: 40 MG, BIWEEKLY
     Route: 058

REACTIONS (13)
  - Disseminated tuberculosis [Recovering/Resolving]
  - C-reactive protein increased [Recovering/Resolving]
  - Tonsillitis [Unknown]
  - Necrosis [Recovering/Resolving]
  - Pulmonary tuberculosis [Recovering/Resolving]
  - Tonsillitis bacterial [Recovering/Resolving]
  - Lymphadenopathy [Recovering/Resolving]
  - Mycobacterium test positive [Recovering/Resolving]
  - Mycobacterium tuberculosis complex test positive [Recovering/Resolving]
  - Odynophagia [Recovering/Resolving]
  - Tonsillar hypertrophy [Recovering/Resolving]
  - Tonsillar ulcer [Recovering/Resolving]
  - Pyrexia [Recovering/Resolving]
